FAERS Safety Report 10178828 (Version 1)
Quarter: 2014Q2

REPORT INFORMATION
  Report Type: Spontaneous
  Country: US (occurrence: None)
  Receive Date: 20140516
  Receipt Date: 20140516
  Transmission Date: 20141212
  Serious: Yes (Disabling)
  Sender: FDA-Public Use
  Company Number: None

PATIENT
  Age: 62 Year
  Sex: Female
  Weight: 63.5 kg

DRUGS (4)
  1. PROLIA [Suspect]
     Indication: OSTEOPOROSIS
  2. LISINOPRIL [Concomitant]
  3. LAP BAND [Concomitant]
  4. ADVIL [Concomitant]

REACTIONS (2)
  - Pain in extremity [None]
  - Dysstasia [None]
